FAERS Safety Report 4818773-2 (Version None)
Quarter: 2005Q4

REPORT INFORMATION
  Report Type: 
  Country: None (occurrence: None)
  Receive Date: 20051101
  Receipt Date: 20051020
  Transmission Date: 20060501
  Serious: Yes (Hospitalization)
  Sender: FDA-Public Use
  Company Number: 218788

PATIENT
  Age: 53 Year
  Sex: Male
  Weight: 102 kg

DRUGS (9)
  1. AVASTIN [Suspect]
     Indication: RENAL CELL CARCINOMA STAGE UNSPECIFIED
     Dosage: 10 MG/KG, Q2W, INTRAVENOUS
     Route: 042
     Dates: start: 20041004, end: 20041004
  2. INTERFERON ALPHA (INTERFERON ALFA) [Suspect]
     Indication: RENAL CELL CARCINOMA STAGE UNSPECIFIED
     Dosage: 9 MU, 3/WEEK, SUBCUTANEOUS
     Route: 058
     Dates: start: 20041004, end: 20050302
  3. CLONIDINE [Concomitant]
  4. MINOXIDIL [Concomitant]
  5. LIPITOR [Concomitant]
  6. NORVASC [Concomitant]
  7. TYLENOL (ACETAMINOPHEN) [Concomitant]
  8. BENICAR [Concomitant]
  9. POTASSIUM SUPPLEMENT (POTASSIUM NOS) [Concomitant]

REACTIONS (4)
  - DIALYSIS [None]
  - HYPERTENSION [None]
  - HYPOKALAEMIA [None]
  - RENAL FAILURE [None]
